FAERS Safety Report 5327273-5 (Version None)
Quarter: 2007Q2

REPORT INFORMATION
  Report Type: 
  Country: None (occurrence: None)
  Receive Date: 20070517
  Receipt Date: 20070515
  Transmission Date: 20071010
  Serious: Yes (Hospitalization)
  Sender: FDA-Public Use
  Company Number: US-BRISTOL-MYERS SQUIBB COMPANY-13754411

PATIENT
  Sex: Male
  Weight: 87 kg

DRUGS (2)
  1. KENALOG [Suspect]
     Indication: INTERVERTEBRAL DISC PROTRUSION
     Dates: start: 20070403, end: 20070403
  2. LISINOPRIL [Concomitant]

REACTIONS (6)
  - ABDOMINAL MASS [None]
  - ABDOMINAL PAIN UPPER [None]
  - NAUSEA [None]
  - STOMACH DISCOMFORT [None]
  - VOMITING [None]
  - WEIGHT DECREASED [None]
